FAERS Safety Report 4362553-1 (Version None)
Quarter: 2004Q2

REPORT INFORMATION
  Report Type: 
  Country: None (occurrence: None)
  Receive Date: 20040517
  Receipt Date: 20040217
  Transmission Date: 20050107
  Serious: Yes (Hospitalization)
  Sender: FDA-Public Use
  Company Number: S04-USA-00837-01

PATIENT
  Age: 85 Year
  Sex: Female

DRUGS (8)
  1. NAMENDA [Suspect]
     Indication: DEMENTIA
     Dosage: 10 MG BID PO
     Route: 048
     Dates: start: 20040201
  2. NAMENDA [Suspect]
     Indication: DEMENTIA
     Dosage: 5 MG, QD PO
     Route: 048
     Dates: start: 20040110, end: 20040117
  3. NAMENDA [Suspect]
     Indication: DEMENTIA
     Dosage: 10 MG QD PO
     Route: 048
     Dates: start: 20040118, end: 20040124
  4. NAMENDA [Suspect]
     Indication: DEMENTIA
     Dosage: 15 MG QD PO
     Route: 048
     Dates: start: 20040125, end: 20040131
  5. ARICEPT [Suspect]
  6. PLAVIX [Concomitant]
  7. CELEXA [Concomitant]
  8. MULTIVITAMIN [Concomitant]

REACTIONS (1)
  - CEREBROVASCULAR ACCIDENT [None]
